FAERS Safety Report 20361380 (Version 2)
Quarter: 2022Q1

REPORT INFORMATION
  Report Type: Spontaneous
  Country: FI (occurrence: FI)
  Receive Date: 20220121
  Receipt Date: 20220215
  Transmission Date: 20220423
  Serious: Yes (Other)
  Sender: FDA-Public Use
  Company Number: FI-BAYER-2022A008493

PATIENT
  Age: 63 Year
  Sex: Female
  Weight: 59.6 kg

DRUGS (5)
  1. XARELTO [Suspect]
     Active Substance: RIVAROXABAN
     Indication: Superficial vein thrombosis
     Dosage: 10 MG
     Route: 048
     Dates: start: 20211222, end: 20211231
  2. XARELTO [Suspect]
     Active Substance: RIVAROXABAN
     Indication: Superficial vein thrombosis
     Dosage: 10 MG
     Route: 048
     Dates: start: 20220103, end: 20220201
  3. TELMISARTAN STADA [Concomitant]
     Indication: Hypertension
     Dosage: 20 MG
  4. ROSUVASTATIN [Concomitant]
     Active Substance: ROSUVASTATIN
     Indication: Blood cholesterol increased
     Dosage: 5 MG
  5. CALCIUM [Concomitant]
     Active Substance: CALCIUM
     Indication: Musculoskeletal stiffness
     Dosage: UNK

REACTIONS (23)
  - Arrhythmia [Recovered/Resolved]
  - Tinnitus [Recovered/Resolved]
  - Ear discomfort [Unknown]
  - Head discomfort [Unknown]
  - Joint stiffness [Unknown]
  - Stiff tongue [Unknown]
  - Nausea [Recovered/Resolved]
  - Nausea [Recovered/Resolved]
  - Blood pressure diastolic increased [Recovering/Resolving]
  - Headache [Unknown]
  - Coccydynia [Unknown]
  - Feeling abnormal [Unknown]
  - Glossodynia [Unknown]
  - Off label use [Unknown]
  - Abdominal discomfort [Unknown]
  - Chest pain [Unknown]
  - Dizziness [Unknown]
  - Vertigo [Unknown]
  - Headache [Unknown]
  - Initial insomnia [Unknown]
  - Eyelids pruritus [Unknown]
  - Rash erythematous [Unknown]
  - Palpitations [Unknown]

NARRATIVE: CASE EVENT DATE: 20211224
